FAERS Safety Report 9928460 (Version 1)
Quarter: 2014Q1

REPORT INFORMATION
  Report Type: Spontaneous
  Country: US (occurrence: None)
  Receive Date: 20140224
  Receipt Date: 20140224
  Transmission Date: 20141002
  Serious: Yes (Death)
  Sender: FDA-Public Use
  Company Number: NL01PV14.35181

PATIENT
  Age: 56 Year
  Sex: Male

DRUGS (10)
  1. ZOLPIDEM [Suspect]
  2. ACETAMINOPHEN / HYDROCODONE [Suspect]
  3. OXYCODONE(OXYCODONE) [Suspect]
  4. FENTANYL (FENTANYL) [Suspect]
  5. PENTAZOCINE [Suspect]
  6. BUTALBITAL (BUTALBITAL) [Suspect]
  7. AMITRIPTYLINE (AMTRIPTYLINE) [Suspect]
  8. DEXTROMETHORPHAN [Suspect]
  9. PROPOXYPHENE (DEXTROPROPOXYPHENE) [Suspect]
  10. DIPHENHYDRAMINE (DIPHENHYDRAMINE) [Suspect]

REACTIONS (1)
  - Drug abuse [None]
